FAERS Safety Report 18559132 (Version 1)
Quarter: 2020Q4

REPORT INFORMATION
  Report Type: Spontaneous
  Country: US (occurrence: US)
  Receive Date: 20201127
  Receipt Date: 20201127
  Transmission Date: 20210114
  Serious: No
  Sender: FDA-Public Use
  Company Number: None

PATIENT
  Age: 67 Year
  Sex: Female

DRUGS (5)
  1. LOSARTAN/HCTZ 100/12.5MG [Concomitant]
     Active Substance: HYDROCHLOROTHIAZIDE\LOSARTAN
     Dates: start: 20190926
  2. ROSUVASTATIN 5MG [Concomitant]
     Active Substance: ROSUVASTATIN
     Dates: start: 20191011
  3. DOVATO [Suspect]
     Active Substance: DOLUTEGRAVIR SODIUM\LAMIVUDINE
     Indication: HIV INFECTION
     Route: 048
     Dates: start: 20201118, end: 20201125
  4. AMLODIPINE [Concomitant]
     Active Substance: AMLODIPINE BESYLATE
     Dates: start: 20190416
  5. MOMETASONE 50MCG NASAL [Concomitant]
     Dates: start: 20200616

REACTIONS (1)
  - Migraine [None]

NARRATIVE: CASE EVENT DATE: 20201125
